FAERS Safety Report 7372102-1 (Version None)
Quarter: 2011Q1

REPORT INFORMATION
  Report Type: 
  Country: None (occurrence: None)
  Receive Date: 20110311
  Receipt Date: 20110303
  Transmission Date: 20110831
  Serious: Yes (Hospitalization, Other)
  Sender: FDA-Public Use
  Company Number: 2011SP010282

PATIENT
  Sex: Female

DRUGS (1)
  1. CHILDREN'S CLARITIN [Suspect]
     Indication: MULTIPLE ALLERGIES
     Dosage: ;PO
     Route: 048

REACTIONS (1)
  - RASH [None]
